FAERS Safety Report 21903156 (Version 1)
Quarter: 2023Q1

REPORT INFORMATION
  Report Type: Spontaneous
  Country: GB (occurrence: GB)
  Receive Date: 20230124
  Receipt Date: 20230124
  Transmission Date: 20230418
  Serious: Yes (Other)
  Sender: FDA-Public Use
  Company Number: GB-BRISTOL-MYERS SQUIBB COMPANY-2023-008389

PATIENT
  Age: 56 Year
  Sex: Female
  Weight: 50 kg

DRUGS (5)
  1. CARBOPLATIN [Suspect]
     Active Substance: CARBOPLATIN
     Indication: Anal squamous cell carcinoma
     Dosage: 1ST LINE TREATMENT WITH PACLITAXEL
     Dates: start: 202208, end: 202209
  2. CARBOPLATIN [Suspect]
     Active Substance: CARBOPLATIN
     Dosage: 2ND LINE (CARBOPLATIN AND DOCETAXEL X 6 CYCLES)
     Dates: start: 202209, end: 20230106
  3. CARBOPLATIN [Suspect]
     Active Substance: CARBOPLATIN
     Dosage: SWITCHED TO X2 CYCLES OF SINGLE AGENT CARBOPLATIN.
  4. DOCETAXEL [Suspect]
     Active Substance: DOCETAXEL
     Indication: Anal squamous cell carcinoma
     Dosage: 2ND LINE (CARBOPLATIN AND DOCETAXEL X 6 CYCLES)
     Dates: start: 202209, end: 20230106
  5. PACLITAXEL [Suspect]
     Active Substance: PACLITAXEL
     Indication: Anal squamous cell carcinoma
     Dosage: 1ST LINE TREATMENT WITH CARBOPLATIN
     Dates: start: 202208, end: 202208

REACTIONS (2)
  - Malignant neoplasm progression [Unknown]
  - Off label use [Unknown]

NARRATIVE: CASE EVENT DATE: 20230101
